FAERS Safety Report 15211543 (Version 1)
Quarter: 2018Q3

REPORT INFORMATION
  Report Type: Spontaneous
  Country: US (occurrence: US)
  Receive Date: 20180702
  Receipt Date: 20180702
  Transmission Date: 20181010
  Serious: Yes (Other)
  Sender: FDA-Public Use
  Company Number: None

PATIENT
  Age: 58 Year

DRUGS (2)
  1. XELJANZ [Suspect]
     Active Substance: TOFACITINIB CITRATE
     Indication: DRUG THERAPY
     Route: 048
     Dates: start: 20180312, end: 20180430
  2. XELJANZ [Suspect]
     Active Substance: TOFACITINIB CITRATE
     Indication: DRUG THERAPY
     Route: 048
     Dates: start: 20180501, end: 20180601

REACTIONS (2)
  - Abdominal pain upper [None]
  - Diarrhoea [None]

NARRATIVE: CASE EVENT DATE: 20180312
